FAERS Safety Report 23517923 (Version 2)
Quarter: 2024Q1

REPORT INFORMATION
  Report Type: Report from Study
  Country: US (occurrence: US)
  Receive Date: 20240213
  Receipt Date: 20240311
  Transmission Date: 20240409
  Serious: No
  Sender: FDA-Public Use
  Company Number: US-BIOVITRUM-2023-US-018106

PATIENT
  Age: 77 Year
  Sex: Female

DRUGS (1)
  1. KINERET [Suspect]
     Active Substance: ANAKINRA
     Indication: Product used for unknown indication
     Dosage: 100 MG, DAILY
     Route: 058

REACTIONS (7)
  - Feeling abnormal [Unknown]
  - Vomiting [Unknown]
  - Urticaria [Unknown]
  - Pyrexia [Unknown]
  - Cardiac disorder [Unknown]
  - Weight fluctuation [Unknown]
  - Immune system disorder [Unknown]
